FAERS Safety Report 6113912-8 (Version None)
Quarter: 2009Q1

REPORT INFORMATION
  Report Type: 
  Country: None (occurrence: None)
  Receive Date: 20090312
  Receipt Date: 20080821
  Transmission Date: 20090719
  Serious: No
  Sender: FDA-Public Use
  Company Number: US-ABBOTT-08P-163-0472025-00

PATIENT
  Sex: Female
  Weight: 59.02 kg

DRUGS (2)
  1. LUPRON DEPOT [Suspect]
     Indication: UTERINE LEIOMYOMA
     Dates: start: 20080601
  2. IRON [Concomitant]
     Indication: ANAEMIA
     Route: 048

REACTIONS (4)
  - DIZZINESS [None]
  - HOT FLUSH [None]
  - VAGINAL HAEMORRHAGE [None]
  - VISION BLURRED [None]
